FAERS Safety Report 19596237 (Version 3)
Quarter: 2022Q1

REPORT INFORMATION
  Report Type: Spontaneous
  Country: US (occurrence: US)
  Receive Date: 20210722
  Receipt Date: 20220124
  Transmission Date: 20220423
  Serious: Yes (Other)
  Sender: FDA-Public Use
  Company Number: US-GILEAD-2021-0541493

PATIENT
  Age: 59 Year
  Sex: Male

DRUGS (19)
  1. ATRIPLA [Suspect]
     Active Substance: EFAVIRENZ\EMTRICITABINE\TENOFOVIR DISOPROXIL FUMARATE
     Indication: HIV infection
     Dosage: UNK
     Route: 048
     Dates: start: 2008, end: 20180905
  2. BIKTARVY [Concomitant]
     Active Substance: BICTEGRAVIR SODIUM\EMTRICITABINE\TENOFOVIR ALAFENAMIDE FUMARATE
  3. AMLODIPINE BESYLATE [Concomitant]
     Active Substance: AMLODIPINE BESYLATE
  4. ATORVASTATIN [Concomitant]
     Active Substance: ATORVASTATIN
  5. CEPHALEXIN [Concomitant]
     Active Substance: CEPHALEXIN
  6. CHANTIX [Concomitant]
     Active Substance: VARENICLINE TARTRATE
  7. CILOSTAZOL [Concomitant]
     Active Substance: CILOSTAZOL
  8. CIPROFLOXACIN [Concomitant]
     Active Substance: CIPROFLOXACIN
  9. DULOXETINE [Concomitant]
     Active Substance: DULOXETINE
  10. FLUCONAZOLE [Concomitant]
     Active Substance: FLUCONAZOLE
  11. GABAPENTIN [Concomitant]
     Active Substance: GABAPENTIN
  12. HARVONI [Concomitant]
     Active Substance: LEDIPASVIR\SOFOSBUVIR
  13. HYDROCHLOROTHIAZIDE [Concomitant]
     Active Substance: HYDROCHLOROTHIAZIDE
  14. HYDROCODONE [Concomitant]
     Active Substance: HYDROCODONE
  15. IBUPROFEN [Concomitant]
     Active Substance: IBUPROFEN
  16. LEVOFLOXACIN [Concomitant]
     Active Substance: LEVOFLOXACIN
  17. METHYLPREDNISOLONE [Concomitant]
     Active Substance: METHYLPREDNISOLONE
  18. PANTOPRAZOLE [Concomitant]
     Active Substance: PANTOPRAZOLE
  19. VITAMIN D NOS [Concomitant]
     Active Substance: VITAMIN D NOS

REACTIONS (13)
  - Chronic kidney disease [Not Recovered/Not Resolved]
  - Osteoporosis [Not Recovered/Not Resolved]
  - Polyneuropathy [Unknown]
  - Bone density decreased [Unknown]
  - Emotional distress [Not Recovered/Not Resolved]
  - Anxiety [Not Recovered/Not Resolved]
  - Anhedonia [Not Recovered/Not Resolved]
  - Blood calcium decreased [Unknown]
  - Restlessness [Not Recovered/Not Resolved]
  - Protein urine present [Unknown]
  - Blood urine present [Unknown]
  - Pain [Not Recovered/Not Resolved]
  - Fatigue [Not Recovered/Not Resolved]

NARRATIVE: CASE EVENT DATE: 20180101
